FAERS Safety Report 9174301 (Version 2)
Quarter: 2013Q4

REPORT INFORMATION
  Report Type: Spontaneous
  Country: GB (occurrence: GB)
  Receive Date: 20130320
  Receipt Date: 20131024
  Transmission Date: 20140711
  Serious: Yes (Disabling, Other)
  Sender: FDA-Public Use
  Company Number: GB-ELI_LILLY_AND_COMPANY-GB201303001739

PATIENT
  Age: 18 Year
  Sex: Female
  Weight: 51 kg

DRUGS (6)
  1. PROZAC [Suspect]
     Indication: DEPRESSED MOOD
     Dosage: 1 DF, UNKNOWN
     Route: 048
     Dates: start: 19970401, end: 20050504
  2. PROZAC [Suspect]
     Indication: ANXIETY
  3. CIPRAMIL [Suspect]
     Indication: DEPRESSED MOOD
     Dosage: 1 DF, UNKNOWN
     Route: 048
     Dates: start: 19970401, end: 20050504
  4. CIPRAMIL [Suspect]
     Indication: ANXIETY
  5. SEROXAT [Suspect]
     Indication: DEPRESSED MOOD
     Dosage: 1 DF, UNKNOWN
     Route: 048
     Dates: start: 19970401, end: 20050504
  6. SEROXAT [Suspect]
     Indication: ANXIETY

REACTIONS (12)
  - Chest pain [Not Recovered/Not Resolved]
  - Heart rate abnormal [Not Recovered/Not Resolved]
  - Hypoaesthesia [Not Recovered/Not Resolved]
  - Blindness [Not Recovered/Not Resolved]
  - Fatigue [Not Recovered/Not Resolved]
  - Dizziness [Not Recovered/Not Resolved]
  - Headache [Not Recovered/Not Resolved]
  - Vomiting [Not Recovered/Not Resolved]
  - Tremor [Not Recovered/Not Resolved]
  - Muscle twitching [Not Recovered/Not Resolved]
  - Vision blurred [Not Recovered/Not Resolved]
  - Palpitations [Not Recovered/Not Resolved]
